FAERS Safety Report 5157670-2 (Version None)
Quarter: 2006Q4

REPORT INFORMATION
  Report Type: 
  Country: None (occurrence: None)
  Receive Date: 20061115
  Receipt Date: 20061107
  Transmission Date: 20070319
  Serious: Yes (Other)
  Sender: FDA-Public Use
  Company Number: 2006AL003468

PATIENT
  Age: 74 Year
  Sex: Male

DRUGS (3)
  1. CITALOPRAM HYDROBROMIDE [Suspect]
     Indication: DEPRESSION
     Dosage: 20 MG; QD; PO
     Route: 048
     Dates: start: 20060822, end: 20060925
  2. LOSARTAN POSTASSIUM [Concomitant]
  3. ATORVASTATIN CALCIUM [Concomitant]

REACTIONS (1)
  - HOMICIDE [None]
